FAERS Safety Report 4591158-2 (Version None)
Quarter: 2005Q1

REPORT INFORMATION
  Report Type: 
  Country: None (occurrence: None)
  Receive Date: 20050223
  Receipt Date: 20050223
  Transmission Date: 20050727
  Serious: Yes (Hospitalization)
  Sender: FDA-Public Use
  Company Number: None

PATIENT
  Sex: Male

DRUGS (9)
  1. GENTAMICIN [Suspect]
     Indication: EMPYEMA
     Dosage: 100 MG Q 12 HR INTRAVENOUS
     Route: 042
     Dates: start: 20040726, end: 20040802
  2. VANCOMYCIN [Concomitant]
  3. ALBUTEROL [Concomitant]
  4. IPRATROPIUM BROMIDE [Concomitant]
  5. THIAMINE [Concomitant]
  6. OMEPRAZOLE [Concomitant]
  7. LACTULOSE [Concomitant]
  8. FOLIC ACID [Concomitant]
  9. PROPRANOLOL [Concomitant]

REACTIONS (3)
  - DYSPNOEA [None]
  - PITTING OEDEMA [None]
  - RENAL TUBULAR NECROSIS [None]
